FAERS Safety Report 5767349-1 (Version None)
Quarter: 2008Q2

REPORT INFORMATION
  Report Type: 
  Country: None (occurrence: None)
  Receive Date: 20080612
  Receipt Date: 20080605
  Transmission Date: 20081010
  Serious: Yes (Other)
  Sender: FDA-Public Use
  Company Number: A0731488A

PATIENT
  Age: 63 Year
  Sex: Male

DRUGS (8)
  1. AVODART [Suspect]
     Indication: BENIGN PROSTATIC HYPERPLASIA
     Dosage: .5MG PER DAY
     Route: 048
     Dates: start: 20080301
  2. GEMFIBROZIL [Concomitant]
  3. OMEPRAZOLE [Concomitant]
  4. DIOVAN [Concomitant]
  5. ALLEGRA [Concomitant]
  6. PROMETHAZINE W/ CODEINE [Concomitant]
  7. AMOXICILLIN + CLAVULANATE POTASSIUM [Concomitant]
  8. CLONAZEPAM [Concomitant]

REACTIONS (6)
  - COUGH [None]
  - GASTRITIS [None]
  - ILL-DEFINED DISORDER [None]
  - INFLUENZA [None]
  - PULMONARY CONGESTION [None]
  - RHINORRHOEA [None]
